FAERS Safety Report 7792221-5 (Version None)
Quarter: 2011Q4

REPORT INFORMATION
  Report Type: 
  Country: None (occurrence: None)
  Receive Date: 20111003
  Receipt Date: 20111003
  Transmission Date: 20120403
  Serious: Yes (Other)
  Sender: FDA-Public Use
  Company Number: None

PATIENT
  Age: 51 Year
  Sex: Female
  Weight: 87.996 kg

DRUGS (5)
  1. LAMOTRIGINE [Suspect]
     Indication: DEPRESSION
     Dosage: 50MG
     Route: 048
     Dates: start: 20110802, end: 20110816
  2. LAMOTRIGINE [Concomitant]
     Dosage: 100MG
     Route: 048
     Dates: start: 20110816, end: 20110922
  3. EFFEXOR XR [Concomitant]
     Route: 048
  4. NEXIUM [Concomitant]
     Route: 048
  5. ADDERALL -GENERIC [Concomitant]
     Route: 048

REACTIONS (1)
  - BLOOD PRESSURE INCREASED [None]
